FAERS Safety Report 11905777 (Version 1)
Quarter: 2016Q1

REPORT INFORMATION
  Report Type: Spontaneous
  Country: KR (occurrence: KR)
  Receive Date: 20160111
  Receipt Date: 20160111
  Transmission Date: 20160526
  Serious: Yes (Other)
  Sender: FDA-Public Use
  Company Number: KR-PAR PHARMACEUTICAL COMPANIES-2016SCPR015072

PATIENT

DRUGS (2)
  1. ADRENALIN [Suspect]
     Active Substance: EPINEPHRINE
     Dosage: 1 MG, SINGLE
     Route: 042
  2. ADRENALIN [Suspect]
     Active Substance: EPINEPHRINE
     Indication: POLYPECTOMY
     Dosage: 0.5 MG, SINGLE, SUBMUCOSAL

REACTIONS (3)
  - Product use issue [Unknown]
  - Stress cardiomyopathy [Recovered/Resolved]
  - Incorrect route of drug administration [Unknown]
